FAERS Safety Report 10399045 (Version 1)
Quarter: 2014Q3

REPORT INFORMATION
  Report Type: Spontaneous
  Country: US (occurrence: None)
  Receive Date: 20140818
  Receipt Date: 20140818
  Transmission Date: 20150326
  Serious: Yes (Life-Threatening, Hospitalization)
  Sender: FDA-Public Use
  Company Number: None

PATIENT
  Age: 81 Year
  Sex: Male
  Weight: 70.31 kg

DRUGS (4)
  1. CYMBALTA [Suspect]
     Active Substance: DULOXETINE HYDROCHLORIDE
     Indication: ANXIETY
     Route: 048
     Dates: start: 20140801, end: 20140808
  2. CYMBALTA [Suspect]
     Active Substance: DULOXETINE HYDROCHLORIDE
     Indication: PAIN
     Route: 048
     Dates: start: 20140801, end: 20140808
  3. TRAMADOL [Suspect]
     Active Substance: TRAMADOL
     Dosage: 50MG, 2/6HRS
  4. ALPRAZOLAM. [Suspect]
     Active Substance: ALPRAZOLAM

REACTIONS (7)
  - Loss of consciousness [None]
  - Foaming at mouth [None]
  - Myalgia [None]
  - Memory impairment [None]
  - Hyperhidrosis [None]
  - Tremor [None]
  - Eye movement disorder [None]

NARRATIVE: CASE EVENT DATE: 20140808
